FAERS Safety Report 21275641 (Version 1)
Quarter: 2022Q3

REPORT INFORMATION
  Report Type: Report from Study
  Country: CA (occurrence: CA)
  Receive Date: 20220831
  Receipt Date: 20220831
  Transmission Date: 20221027
  Serious: Yes (Other)
  Sender: FDA-Public Use
  Company Number: CA-TAKEDA-2022TUS058645

PATIENT
  Age: 34 Year
  Sex: Female

DRUGS (4)
  1. LISDEXAMFETAMINE DIMESYLATE [Suspect]
     Active Substance: LISDEXAMFETAMINE DIMESYLATE
     Indication: Attention deficit hyperactivity disorder
     Dosage: 50 MILLIGRAM, QD
     Route: 048
     Dates: end: 20220814
  2. LISDEXAMFETAMINE DIMESYLATE [Suspect]
     Active Substance: LISDEXAMFETAMINE DIMESYLATE
     Dosage: 10 MILLIGRAM, QD
     Route: 048
     Dates: end: 20220814
  3. SERTRALINE [Concomitant]
     Active Substance: SERTRALINE HYDROCHLORIDE
  4. BILASTINE [Concomitant]
     Active Substance: BILASTINE

REACTIONS (6)
  - Condition aggravated [Unknown]
  - Unevaluable event [Unknown]
  - Binge eating [Unknown]
  - Withdrawal syndrome [Unknown]
  - Hypersensitivity [Unknown]
  - Therapy interrupted [Unknown]
